FAERS Safety Report 5510745-8 (Version None)
Quarter: 2007Q4

REPORT INFORMATION
  Report Type: 
  Country: None (occurrence: None)
  Receive Date: 20071108
  Receipt Date: 20071105
  Transmission Date: 20080405
  Serious: Yes (Other)
  Sender: FDA-Public Use
  Company Number: B0483793A

PATIENT
  Age: 40 Year
  Sex: Female

DRUGS (5)
  1. FLOLAN [Suspect]
     Indication: PULMONARY HYPERTENSION
     Route: 042
     Dates: start: 20070730, end: 20070730
  2. TRACLEER [Concomitant]
     Route: 048
  3. ATROPINE SULPHATE [Concomitant]
  4. CATECHOLAMINE [Concomitant]
  5. FLUID [Concomitant]

REACTIONS (1)
  - SHOCK [None]
